FAERS Safety Report 22217658 (Version 1)
Quarter: 2023Q2

REPORT INFORMATION
  Report Type: Spontaneous
  Country: ES (occurrence: ES)
  Receive Date: 20230417
  Receipt Date: 20230417
  Transmission Date: 20230722
  Serious: Yes (Other)
  Sender: FDA-Public Use
  Company Number: ES-AUROBINDO-AUR-APL-2023-030950

PATIENT
  Age: 70 Year
  Sex: Male

DRUGS (3)
  1. QUETIAPINE [Suspect]
     Active Substance: QUETIAPINE
     Indication: Impulse-control disorder
     Dosage: 100 MILLIGRAM/DAY
     Route: 065
  2. CARBIDOPA AND LEVODOPA [Suspect]
     Active Substance: CARBIDOPA\LEVODOPA
     Indication: Parkinson^s disease
     Dosage: 1340 MILLIGRAM/DAY(BEFORE LEVODOPA/CARBIDOPA INTESTINAL GEL THE EQUIVALENT DOSE OF LEVODOPA WAS 1500
     Route: 065
  3. CARBIDOPA AND LEVODOPA [Suspect]
     Active Substance: CARBIDOPA\LEVODOPA
     Dosage: 1400 MILLIGRAM/DAY(DOSE INCREASED)
     Route: 065

REACTIONS (1)
  - Drug ineffective [Unknown]
